FAERS Safety Report 18968802 (Version 1)
Quarter: 2021Q1

REPORT INFORMATION
  Report Type: Spontaneous
  Country: NZ (occurrence: NZ)
  Receive Date: 20210304
  Receipt Date: 20210304
  Transmission Date: 20210420
  Serious: Yes (Other)
  Sender: FDA-Public Use
  Company Number: NZ-PFIZER INC-2021220419

PATIENT
  Age: 51 Year

DRUGS (1)
  1. PALBOCICLIB [Suspect]
     Active Substance: PALBOCICLIB
     Dosage: 125 MG, CYCLIC (ONCE DAILY, 3 WEEKS ON, 1 WEEK OFF)
     Dates: start: 202006

REACTIONS (1)
  - Duodenal ulcer perforation [Unknown]

NARRATIVE: CASE EVENT DATE: 202101
